FAERS Safety Report 5017934-X (Version None)
Quarter: 2006Q2

REPORT INFORMATION
  Report Type: 
  Country: None (occurrence: None)
  Receive Date: 20060605
  Receipt Date: 20060523
  Transmission Date: 20061013
  Serious: Yes (Hospitalization)
  Sender: FDA-Public Use
  Company Number: US-GLAXOSMITHKLINE-A0606716A

PATIENT
  Age: 76 Year
  Sex: Female

DRUGS (3)
  1. TOPOTECAN [Suspect]
     Indication: OVARIAN CANCER
     Dosage: 2.5MGM2 CYCLIC
     Route: 042
     Dates: start: 20060303
  2. LOVENOX [Concomitant]
     Dosage: 80MG TWICE PER DAY
     Route: 058
     Dates: start: 20060222
  3. TYLENOL (CAPLET) [Concomitant]
     Dosage: 500MG ALTERNATE DAYS
     Route: 048

REACTIONS (4)
  - ASCITES [None]
  - DYSPNOEA EXACERBATED [None]
  - FLUID RETENTION [None]
  - PLATELET COUNT DECREASED [None]
